FAERS Safety Report 25134333 (Version 2)
Quarter: 2025Q3

REPORT INFORMATION
  Report Type: Spontaneous
  Country: GB (occurrence: GB)
  Receive Date: 20250328
  Receipt Date: 20250810
  Transmission Date: 20251021
  Serious: Yes (Other)
  Sender: ALEXION PHARMACEUTICALS
  Company Number: EU-AstraZeneca-CH-00798381A

PATIENT
  Age: 71 Year
  Sex: Male
  Weight: 89 kg

DRUGS (17)
  1. DAPAGLIFLOZIN [Suspect]
     Active Substance: DAPAGLIFLOZIN
     Indication: Cardiac failure chronic
     Dosage: 10 MILLIGRAM, QD
     Dates: start: 20220601, end: 20250125
  2. BISOPROLOL [Concomitant]
     Active Substance: BISOPROLOL
     Indication: Cardiac failure chronic
     Dosage: 10 UNK, QD
     Dates: start: 20140601
  3. SPIRONOLACTONE [Concomitant]
     Active Substance: SPIRONOLACTONE
     Indication: Cardiac failure chronic
     Dosage: 25 UNK, QD
     Dates: start: 20140701
  4. FUROSEMIDE [Concomitant]
     Active Substance: FUROSEMIDE
     Indication: Cardiac failure chronic
     Dosage: 40 UNK, BID
     Dates: start: 20140601
  5. IVABRADINE [Concomitant]
     Active Substance: IVABRADINE
     Indication: Cardiac failure chronic
  6. CLOPIDOGREL [Concomitant]
     Active Substance: CLOPIDOGREL BISULFATE
     Indication: Retinal artery occlusion
     Dosage: 75 MILLIGRAM, QD
     Dates: start: 20170715
  7. VENLAFAXINE [Concomitant]
     Active Substance: VENLAFAXINE HYDROCHLORIDE
     Indication: Depression
     Dosage: 225 MILLIGRAM, QD
     Dates: start: 199909
  8. ENTRESTO [Concomitant]
     Active Substance: SACUBITRIL\VALSARTAN
     Indication: Cardiac failure chronic
     Dosage: 100 MILLIGRAM, QD
     Dates: start: 20220909
  9. LANSOPRAZOLE [Concomitant]
     Active Substance: LANSOPRAZOLE
     Indication: Gastrooesophageal reflux disease
     Dosage: 20 MILLIGRAM, QD
     Dates: start: 20170701
  10. AMOXICILLIN [Concomitant]
     Active Substance: AMOXICILLIN
     Route: 065
  11. AMOXICILLIN [Concomitant]
     Active Substance: AMOXICILLIN
  12. AMOXICILLIN [Concomitant]
     Active Substance: AMOXICILLIN
  13. AMOXICILLIN [Concomitant]
     Active Substance: AMOXICILLIN
  14. FERRITIN [Concomitant]
     Active Substance: FERRITIN
     Route: 065
  15. FERRITIN [Concomitant]
     Active Substance: FERRITIN
  16. FERRITIN [Concomitant]
     Active Substance: FERRITIN
  17. FERRITIN [Concomitant]
     Active Substance: FERRITIN

REACTIONS (4)
  - Prostatitis [Recovered/Resolved]
  - Cardiac failure [Unknown]
  - Product use issue [Unknown]
  - Dilated cardiomyopathy [Unknown]

NARRATIVE: CASE EVENT DATE: 20250101
